FAERS Safety Report 23226329 (Version 2)
Quarter: 2023Q4

REPORT INFORMATION
  Report Type: Spontaneous
  Country: ES (occurrence: ES)
  Receive Date: 20231124
  Receipt Date: 20231129
  Transmission Date: 20240110
  Serious: Yes (Hospitalization, Other)
  Sender: FDA-Public Use
  Company Number: ES-GT-20232216

PATIENT
  Age: 64 Year
  Sex: Male

DRUGS (6)
  1. ARIPIPRAZOLE [Suspect]
     Active Substance: ARIPIPRAZOLE
     Indication: Schizophrenia
     Dosage: UNK
     Route: 065
  2. LORAZEPAM [Suspect]
     Active Substance: LORAZEPAM
     Indication: Schizophrenia
     Dosage: UNK
     Route: 065
  3. LEVOMEPROMAZINE [Suspect]
     Active Substance: LEVOMEPROMAZINE
     Indication: Schizophrenia
     Dosage: UNK
     Route: 065
  4. BIPERIDEN [Suspect]
     Active Substance: BIPERIDEN
     Indication: Schizophrenia
     Dosage: UNK
     Route: 065
  5. SERTRALINE HYDROCHLORIDE [Suspect]
     Active Substance: SERTRALINE HYDROCHLORIDE
     Indication: Schizophrenia
     Dosage: UNK
     Route: 065
  6. QUETIAPINE [Suspect]
     Active Substance: QUETIAPINE
     Indication: Schizophrenia
     Dosage: UNK
     Route: 065

REACTIONS (4)
  - General physical health deterioration [Recovering/Resolving]
  - Gait inability [Recovering/Resolving]
  - Pyrexia [Recovering/Resolving]
  - Neuroleptic malignant syndrome [Recovering/Resolving]
